FAERS Safety Report 12559127 (Version 2)
Quarter: 2016Q3

REPORT INFORMATION
  Report Type: Spontaneous
  Country: US (occurrence: US)
  Receive Date: 20160715
  Receipt Date: 20160719
  Transmission Date: 20161109
  Serious: No
  Sender: FDA-Public Use
  Company Number: US-TEVA-663391USA

PATIENT
  Age: 39 Year
  Sex: Female

DRUGS (3)
  1. ELAVIL [Concomitant]
     Active Substance: AMITRIPTYLINE HYDROCHLORIDE
  2. ZOLOFT [Concomitant]
     Active Substance: SERTRALINE HYDROCHLORIDE
  3. ZECUITY [Suspect]
     Active Substance: SUMATRIPTAN SUCCINATE
     Indication: MIGRAINE
     Dosage: 6.5 MG OVER 4 HOURS
     Route: 062
     Dates: start: 20160519, end: 20160519

REACTIONS (6)
  - Emotional disorder [Recovered/Resolved]
  - Application site erythema [Not Recovered/Not Resolved]
  - Drug effect incomplete [Unknown]
  - Application site discolouration [Not Recovered/Not Resolved]
  - Crying [Recovered/Resolved]
  - Application site pruritus [Unknown]

NARRATIVE: CASE EVENT DATE: 20160519
